FAERS Safety Report 17441098 (Version 2)
Quarter: 2020Q1

REPORT INFORMATION
  Report Type: Report from Study
  Country: CO (occurrence: CO)
  Receive Date: 20200220
  Receipt Date: 20200306
  Transmission Date: 20200409
  Serious: Yes (Other)
  Sender: FDA-Public Use
  Company Number: CO-ASTELLAS-2019US037523

PATIENT
  Age: 46 Year
  Sex: Female
  Weight: 54 kg

DRUGS (17)
  1. TACROLIMUS. [Suspect]
     Active Substance: TACROLIMUS
     Dosage: 1 MG, ONCE DAILY (1 CAPSULE OF 1 MG)
     Route: 048
     Dates: end: 20190910
  2. TINIDAZOLE. [Concomitant]
     Active Substance: TINIDAZOLE
     Indication: PRODUCT USED FOR UNKNOWN INDICATION
     Route: 048
     Dates: start: 20190804
  3. PRAZOSIN. [Concomitant]
     Active Substance: PRAZOSIN
     Route: 048
  4. TACROLIMUS. [Suspect]
     Active Substance: TACROLIMUS
     Dosage: 3 MG, ONCE DAILY (3 CAPSULES OF 1 MG)
     Route: 048
  5. TACROLIMUS. [Suspect]
     Active Substance: TACROLIMUS
     Dosage: 1 MG IN MORNING AND 2 MG AT NIGHT, TWICE DAILY
     Route: 048
     Dates: start: 201909, end: 201911
  6. NYSTATIN. [Concomitant]
     Active Substance: NYSTATIN
     Indication: PRODUCT USED FOR UNKNOWN INDICATION
     Dosage: 5 CC, EVERY 8 HOURS
     Route: 048
     Dates: start: 20190804
  7. SIROLIMUS. [Suspect]
     Active Substance: SIROLIMUS
     Dosage: 1 MG, EVERY OTHER DAY
     Route: 048
  8. PRAZOSIN. [Concomitant]
     Active Substance: PRAZOSIN
     Indication: PRODUCT USED FOR UNKNOWN INDICATION
     Route: 048
     Dates: start: 20190804
  9. TACROLIMUS. [Suspect]
     Active Substance: TACROLIMUS
     Indication: RENAL TRANSPLANT
     Route: 048
     Dates: start: 20190911, end: 201909
  10. OMEPRAZOLE. [Concomitant]
     Active Substance: OMEPRAZOLE
     Indication: PRODUCT USED FOR UNKNOWN INDICATION
     Dosage: 40 MG, ON AN EMPTY STOMACH AND BEFORE EACH MEAL
     Route: 048
     Dates: start: 20190804
  11. CLONIDINE. [Concomitant]
     Active Substance: CLONIDINE
     Indication: PRODUCT USED FOR UNKNOWN INDICATION
     Route: 048
     Dates: start: 20190804
  12. SIROLIMUS. [Suspect]
     Active Substance: SIROLIMUS
     Indication: POLYOMAVIRUS TEST POSITIVE
     Dosage: 1 MG, ONCE DAILY IN BETWEEN
     Route: 048
     Dates: start: 20191027
  13. MYCOPHENOLATE [Suspect]
     Active Substance: MYCOPHENOLIC ACID
     Indication: PRODUCT USED FOR UNKNOWN INDICATION
     Route: 048
     Dates: start: 20190804, end: 20191027
  14. PREDNISOLONE. [Concomitant]
     Active Substance: PREDNISOLONE
     Indication: PRODUCT USED FOR UNKNOWN INDICATION
     Route: 048
     Dates: start: 20190804
  15. TACROLIMUS. [Suspect]
     Active Substance: TACROLIMUS
     Indication: RENAL TRANSPLANT
     Dosage: 8 MG, ONCE DAILY (3 CAPSULES OF 1 MG AND 1 CAPSULE OF 5 MG)
     Route: 048
     Dates: start: 20090804
  16. TACROLIMUS. [Suspect]
     Active Substance: TACROLIMUS
     Route: 048
     Dates: start: 201911
  17. PREDNISOLONE. [Concomitant]
     Active Substance: PREDNISOLONE
     Route: 048

REACTIONS (7)
  - Toxicity to various agents [Recovering/Resolving]
  - Alopecia [Recovering/Resolving]
  - Immunosuppressant drug level increased [Recovered/Resolved]
  - Secondary immunodeficiency [Recovered/Resolved]
  - Product supply issue [Unknown]
  - Polyomavirus test positive [Not Recovered/Not Resolved]
  - Toxicity to various agents [Recovered/Resolved]

NARRATIVE: CASE EVENT DATE: 20190822
